FAERS Safety Report 17502513 (Version 2)
Quarter: 2020Q1

REPORT INFORMATION
  Report Type: Spontaneous
  Country: NL (occurrence: NL)
  Receive Date: 20200305
  Receipt Date: 20200313
  Transmission Date: 20200409
  Serious: Yes (Other)
  Sender: FDA-Public Use
  Company Number: NL-BEH-2020113858

PATIENT
  Age: 66 Year
  Sex: Female

DRUGS (2)
  1. HUMAN IMMUNOGLOBULIN (NC) [Suspect]
     Active Substance: HUMAN IMMUNOGLOBULIN G
     Indication: ENCEPHALITIS ENTEROVIRAL
     Dosage: 400 MILLIGRAM/KILOGRAM
     Route: 042
  2. AMOXYCILLIN [AMOXICILLIN SODIUM] [Concomitant]
     Active Substance: AMOXICILLIN SODIUM
     Indication: PNEUMONIA
     Dosage: UNK
     Route: 065

REACTIONS (9)
  - Blood pressure fluctuation [None]
  - Pyrexia [None]
  - Atrial fibrillation [None]
  - Drug ineffective for unapproved indication [Fatal]
  - Pleural effusion [None]
  - Diarrhoea [None]
  - Oedema peripheral [None]
  - Product use in unapproved indication [Fatal]
  - Respiratory failure [None]
